FAERS Safety Report 13695547 (Version 1)
Quarter: 2017Q2

REPORT INFORMATION
  Report Type: Other
  Country: FR (occurrence: FR)
  Receive Date: 20170627
  Receipt Date: 20170627
  Transmission Date: 20170830
  Serious: Yes (Hospitalization)
  Sender: FDA-Public Use
  Company Number: FR-ALSI-201700184

PATIENT
  Age: 69 Year
  Sex: Male

DRUGS (9)
  1. OXYGEN MEDICINAL [Suspect]
     Active Substance: OXYGEN
     Indication: RESPIRATORY DISTRESS
     Route: 055
     Dates: start: 20131231, end: 20140225
  2. CORDARONE [Suspect]
     Active Substance: AMIODARONE HYDROCHLORIDE
     Dates: start: 20131231, end: 20141212
  3. RHINOTROPHYL (ETHANOLAMINE TENOATE) [Concomitant]
  4. CEFUROXIME. [Concomitant]
     Active Substance: CEFUROXIME
  5. NEOCODION (CODEINE) [Concomitant]
  6. CARTEOLOL HYDROCHLORIDE. [Concomitant]
     Active Substance: CARTEOLOL HYDROCHLORIDE
  7. OLMESARTAN MEDOXOMIL;AMLODIPINE BESILATE [Concomitant]
  8. PREDNISOLONE. [Concomitant]
     Active Substance: PREDNISOLONE
  9. PRAVADUAL (PRAVASTATIN SODIUM;ACETYLSALICYLIC ACID [Concomitant]

REACTIONS (2)
  - Drug interaction [Not Recovered/Not Resolved]
  - Pulmonary fibrosis [Not Recovered/Not Resolved]
